FAERS Safety Report 4720881-1 (Version None)
Quarter: 2005Q3

REPORT INFORMATION
  Report Type: 
  Country: None (occurrence: None)
  Receive Date: 20050719
  Receipt Date: 20041220
  Transmission Date: 20060218
  Serious: Yes (Other)
  Sender: FDA-Public Use
  Company Number: 2004116568

PATIENT
  Age: 51 Year
  Sex: Male
  Weight: 102.0593 kg

DRUGS (6)
  1. CELEBREX [Suspect]
     Dosage: 200 MG (200 MG, DAILY INTERVAL: EVERY DAY), PARENTERAL
     Route: 051
  2. WARFARIN SODIUM [Concomitant]
  3. LISINOPRIL [Concomitant]
  4. ALLOPURINOL [Concomitant]
  5. ANTI-DIABETICS (ANTI-DIABETICS) [Concomitant]
  6. DIGOXIN [Concomitant]

REACTIONS (2)
  - DIZZINESS [None]
  - PALPITATIONS [None]
